FAERS Safety Report 11740474 (Version 2)
Quarter: 2015Q4

REPORT INFORMATION
  Report Type: Spontaneous
  Country: US (occurrence: US)
  Receive Date: 20151110
  Receipt Date: 20151120
  Transmission Date: 20160304
  Serious: No
  Sender: FDA-Public Use
  Company Number: US-ELI_LILLY_AND_COMPANY-US201111007853

PATIENT
  Age: 71 Year
  Sex: Male

DRUGS (7)
  1. FORTEO [Suspect]
     Active Substance: TERIPARATIDE
     Dosage: 20 UG, QOD
     Dates: start: 201211
  2. FORTEO [Suspect]
     Active Substance: TERIPARATIDE
     Indication: OSTEOPOROSIS
     Dosage: 20 UG, QD
     Route: 065
     Dates: start: 20111031
  3. FORTEO [Suspect]
     Active Substance: TERIPARATIDE
     Dosage: 20 UG, QD
     Route: 065
  4. FORTEO [Suspect]
     Active Substance: TERIPARATIDE
     Dosage: 20 UG, QD
     Route: 065
  5. ANALGESICS [Concomitant]
     Active Substance: UNSPECIFIED INGREDIENT
  6. FORTEO [Suspect]
     Active Substance: TERIPARATIDE
     Dosage: 20 UG, QD
     Route: 065
  7. FORTEO [Suspect]
     Active Substance: TERIPARATIDE
     Dosage: 20 UG, QD
     Dates: start: 201301

REACTIONS (13)
  - Feeling drunk [Unknown]
  - Blood glucose increased [Unknown]
  - Restlessness [Unknown]
  - Sleep disorder due to a general medical condition [Unknown]
  - Thinking abnormal [Unknown]
  - Feeling abnormal [Unknown]
  - Arthralgia [Recovering/Resolving]
  - Somnolence [Unknown]
  - Surgery [Recovering/Resolving]
  - Nausea [Unknown]
  - Rash erythematous [Unknown]
  - Medication error [Unknown]
  - Intentional product misuse [Unknown]

NARRATIVE: CASE EVENT DATE: 20120327
